FAERS Safety Report 24646510 (Version 1)
Quarter: 2024Q4

REPORT INFORMATION
  Report Type: Spontaneous
  Country: US (occurrence: US)
  Receive Date: 20241121
  Receipt Date: 20241121
  Transmission Date: 20250114
  Serious: Yes (Other)
  Sender: ALEXION PHARMACEUTICALS
  Company Number: US-ASTRAZENECA-202411GLO009477US

PATIENT
  Age: 81 Year

DRUGS (4)
  1. CALQUENCE [Suspect]
     Active Substance: ACALABRUTINIB
     Indication: Chronic lymphocytic leukaemia
     Dosage: UNK
     Route: 065
  2. CALQUENCE [Suspect]
     Active Substance: ACALABRUTINIB
     Dosage: UNK
  3. CALQUENCE [Suspect]
     Active Substance: ACALABRUTINIB
     Dosage: UNK
     Route: 065
  4. CALQUENCE [Suspect]
     Active Substance: ACALABRUTINIB
     Dosage: UNK

REACTIONS (1)
  - Ocular surface squamous neoplasia [Recovered/Resolved]
